FAERS Safety Report 6384476-9 (Version None)
Quarter: 2009Q4

REPORT INFORMATION
  Report Type: 
  Country: None (occurrence: None)
  Receive Date: 20091001
  Receipt Date: 20090923
  Transmission Date: 20100525
  Serious: Yes (Hospitalization, Other)
  Sender: FDA-Public Use
  Company Number: CZ-NOVOPROD-291371

PATIENT
  Sex: Male
  Weight: 2.6 kg

DRUGS (2)
  1. NOVORAPID [Suspect]
     Indication: TYPE 1 DIABETES MELLITUS
     Dosage: 49 IU, QD
     Route: 064
     Dates: start: 20060101
  2. LIZINOPRILS [Concomitant]
     Route: 064

REACTIONS (1)
  - DIABETIC FOETOPATHY [None]
